FAERS Safety Report 9947420 (Version 1)
Quarter: 2014Q1

REPORT INFORMATION
  Report Type: Report from Study
  Country: US (occurrence: US)
  Receive Date: 20140303
  Receipt Date: 20140303
  Transmission Date: 20141002
  Serious: No
  Sender: FDA-Public Use
  Company Number: US-ABBVIE-13P-163-1059916-00

PATIENT
  Age: 63 Year
  Sex: Male

DRUGS (7)
  1. HUMIRA [Suspect]
     Indication: CROHN^S DISEASE
     Dates: start: 20130103
  2. TYLENOL [Concomitant]
     Indication: PAIN
  3. TYLENOL [Concomitant]
     Indication: BODY TEMPERATURE INCREASED
  4. VITAMIN B12 NOS [Concomitant]
     Indication: VITAMIN B12 DEFICIENCY
     Dosage: WEEKLY
     Route: 050
  5. PREDNISONE [Concomitant]
     Indication: CROHN^S DISEASE
  6. IRON [Concomitant]
     Indication: ANAEMIA
  7. CIPRO [Concomitant]
     Indication: PRODUCT USED FOR UNKNOWN INDICATION

REACTIONS (1)
  - Pyrexia [Recovered/Resolved]
